FAERS Safety Report 14461465 (Version 1)
Quarter: 2018Q1

REPORT INFORMATION
  Report Type: Spontaneous
  Country: US (occurrence: US)
  Receive Date: 20180130
  Receipt Date: 20180130
  Transmission Date: 20180509
  Serious: Yes (Other)
  Sender: FDA-Public Use
  Company Number: US-FRESENIUS KABI-FK201801195

PATIENT
  Age: 75 Year
  Sex: Female

DRUGS (1)
  1. ARGATROBAN (MAUFACTURER UNKNOWN) [Suspect]
     Active Substance: ARGATROBAN
     Indication: SUBCLAVIAN ARTERY THROMBOSIS
     Route: 041

REACTIONS (4)
  - Respiratory failure [Unknown]
  - Haemorrhagic stroke [Unknown]
  - Cerebral haemorrhage [Unknown]
  - Ischaemic stroke [Unknown]
